FAERS Safety Report 4312223-0 (Version None)
Quarter: 2004Q1

REPORT INFORMATION
  Report Type: 
  Country: None (occurrence: None)
  Receive Date: 20040305
  Receipt Date: 20040303
  Transmission Date: 20041129
  Serious: Yes (Hospitalization)
  Sender: FDA-Public Use
  Company Number: WAES 0403DEU00018

PATIENT
  Age: 58 Year
  Sex: Female

DRUGS (6)
  1. ALBUTEROL SULFATE [Concomitant]
     Indication: BRONCHITIS CHRONIC
     Route: 055
  2. ENOXAPARIN SODIUM [Suspect]
     Indication: THROMBOSIS PROPHYLAXIS
     Route: 058
     Dates: start: 20030812
  3. LEVOMEPROMAZINE [Concomitant]
     Indication: RESTLESSNESS
     Route: 048
     Dates: end: 20030823
  4. OFLOXACIN [Concomitant]
     Indication: URINARY TRACT INFECTION
     Route: 048
     Dates: start: 20030814, end: 20030821
  5. VIOXX [Suspect]
     Indication: POST PROCEDURAL PAIN
     Route: 048
     Dates: start: 20030814, end: 20030823
  6. THEOPHYLLINE [Concomitant]
     Indication: BRONCHITIS CHRONIC
     Route: 048

REACTIONS (6)
  - DRUG INTERACTION [None]
  - GASTROINTESTINAL HAEMORRHAGE [None]
  - HEART RATE INCREASED [None]
  - HIATUS HERNIA [None]
  - HYPOTENSION [None]
  - OESOPHAGITIS HAEMORRHAGIC [None]
